FAERS Safety Report 7483073-1 (Version None)
Quarter: 2011Q2

REPORT INFORMATION
  Report Type: 
  Country: None (occurrence: None)
  Receive Date: 20110516
  Receipt Date: 20100420
  Transmission Date: 20111010
  Serious: Yes (Hospitalization)
  Sender: FDA-Public Use
  Company Number: DE-GENENTECH-318616

PATIENT
  Age: 62 Year
  Sex: Male

DRUGS (2)
  1. IMMUNOSUPPRESSANTS [Concomitant]
     Indication: PRODUCT USED FOR UNKNOWN INDICATION
  2. LUCENTIS [Suspect]
     Indication: MACULAR DEGENERATION
     Dosage: UNK
     Route: 031
     Dates: start: 20091019

REACTIONS (3)
  - VISUAL ACUITY REDUCED [None]
  - LOSS OF VISUAL CONTRAST SENSITIVITY [None]
  - INFECTION [None]
